FAERS Safety Report 6780925-2 (Version None)
Quarter: 2010Q2

REPORT INFORMATION
  Report Type: 
  Country: None (occurrence: None)
  Receive Date: 20100621
  Receipt Date: 20100505
  Transmission Date: 20101027
  Serious: No
  Sender: FDA-Public Use
  Company Number: US-JNJFOC-20100501663

PATIENT
  Sex: Male

DRUGS (6)
  1. INVEGA [Suspect]
     Indication: DRUG USE FOR UNKNOWN INDICATION
     Route: 048
  2. LEVODOPA [Interacting]
     Indication: DRUG USE FOR UNKNOWN INDICATION
     Route: 048
  3. REQUIP [Concomitant]
     Route: 048
  4. GEODON [Concomitant]
     Route: 048
  5. AMBIEN [Concomitant]
     Route: 048
  6. LORAZEPAM [Concomitant]
     Route: 048

REACTIONS (2)
  - ADVERSE DRUG REACTION [None]
  - DRUG INTERACTION [None]
